FAERS Safety Report 19965581 (Version 3)
Quarter: 2023Q1

REPORT INFORMATION
  Report Type: Report from Study
  Country: US (occurrence: US)
  Receive Date: 20211018
  Receipt Date: 20230227
  Transmission Date: 20230417
  Serious: Yes (Other)
  Sender: FDA-Public Use
  Company Number: US-SANOFI-00586283

PATIENT
  Age: 76 Year
  Sex: Female

DRUGS (11)
  1. TERIFLUNOMIDE [Suspect]
     Active Substance: TERIFLUNOMIDE
     Indication: Multiple sclerosis
     Dosage: 14 MG, QD
     Route: 048
     Dates: start: 20210503
  2. LEVODOPA [Suspect]
     Active Substance: LEVODOPA
     Dosage: UNK
  3. VITAMINS NOS [Concomitant]
     Active Substance: VITAMINS
     Dosage: UNK
  4. ALDOPA [Concomitant]
  5. OCUVITE [ASCORBIC ACID;RETINOL;TOCOPHEROL] [Concomitant]
  6. DIETARY SUPPLEMENT [Concomitant]
     Active Substance: DIETARY SUPPLEMENT
  7. LATANOPROST [Concomitant]
     Active Substance: LATANOPROST
  8. TYLENOL [Concomitant]
     Active Substance: ACETAMINOPHEN
  9. ESCITALOPRAM [Concomitant]
     Active Substance: ESCITALOPRAM OXALATE
  10. MINERALS\VITAMINS [Concomitant]
     Active Substance: MINERALS\VITAMINS
  11. VITAMIN D3 [Concomitant]
     Active Substance: CHOLECALCIFEROL

REACTIONS (7)
  - Parkinson^s disease [Not Recovered/Not Resolved]
  - Crohn^s disease [Unknown]
  - Dyspepsia [Recovered/Resolved]
  - Flatulence [Unknown]
  - Memory impairment [Unknown]
  - Diarrhoea [Not Recovered/Not Resolved]
  - Drug ineffective [Unknown]

NARRATIVE: CASE EVENT DATE: 20210101
